FAERS Safety Report 22009704 (Version 2)
Quarter: 2023Q1

REPORT INFORMATION
  Report Type: Spontaneous
  Country: US (occurrence: US)
  Receive Date: 20230220
  Receipt Date: 20230223
  Transmission Date: 20230417
  Serious: Yes (Other)
  Sender: FDA-Public Use
  Company Number: US-ABBVIE-4312414

PATIENT
  Age: 78 Year
  Sex: Male
  Weight: 115 kg

DRUGS (7)
  1. IMBRUVICA [Suspect]
     Active Substance: IBRUTINIB
     Indication: Product used for unknown indication
     Route: 048
  2. SINGULAIR [Concomitant]
     Active Substance: MONTELUKAST SODIUM
     Indication: Sinus disorder
     Dosage: STOP DATE TEXT: LAST DOSE: 14-FEB-2023
     Dates: start: 2003
  3. IPRATROPIUM BROMIDE [Concomitant]
     Active Substance: IPRATROPIUM BROMIDE
     Indication: Nasal congestion
     Dosage: START DATE TEXT: AUG-2022 OR SEP-2022
  4. VENCLEXTA [Concomitant]
     Active Substance: VENETOCLAX
     Indication: Chronic lymphocytic leukaemia
     Dosage: FORM STRENGTH: 100 MG??STOP DATE TEXT: LAST DOSE: 14-FEB-2023
     Route: 048
  5. PRESERVISION AREDS 2 multiple plus vitamin [Concomitant]
     Indication: Cataract
     Dosage: 2 TABLETS DAILY IN MORNING AND EVENING??DURATION TEXT:  LAST DOSE:14-FEB-2023
     Route: 048
     Dates: start: 2021
  6. ALLEGRA [Concomitant]
     Active Substance: FEXOFENADINE HYDROCHLORIDE
     Indication: Product used for unknown indication
     Dates: start: 1998
  7. CLARITIN [Concomitant]
     Active Substance: LORATADINE
     Indication: Sinus disorder
     Dosage: OTC??DURATION TEXT:  LAST DOSE: 14-FEB-2023
     Route: 048
     Dates: start: 1998

REACTIONS (9)
  - Chronic lymphocytic leukaemia [Recovering/Resolving]
  - Hypersensitivity [Recovering/Resolving]
  - Tremor [Recovering/Resolving]
  - Sinus disorder [Recovering/Resolving]
  - Skin haemorrhage [Recovering/Resolving]
  - Arthralgia [Not Recovered/Not Resolved]
  - Cataract [Recovered/Resolved]
  - Osteoarthritis [Unknown]
  - Pneumonia [Recovered/Resolved]

NARRATIVE: CASE EVENT DATE: 20220701
